FAERS Safety Report 7147812-1 (Version None)
Quarter: 2010Q4

REPORT INFORMATION
  Report Type: 
  Country: None (occurrence: None)
  Receive Date: 20101206
  Receipt Date: 20101206
  Transmission Date: 20110411
  Serious: Yes (Other)
  Sender: FDA-Public Use
  Company Number: None

PATIENT
  Age: 19 Year
  Sex: Male
  Weight: 88.4514 kg

DRUGS (2)
  1. RISPERIDONE [Suspect]
     Indication: PSYCHOTIC DISORDER
     Dosage: DAILY, ORAL
     Route: 048
     Dates: start: 20100301, end: 20101001
  2. DEPAKOTE (VALPRONE ACID) [Concomitant]

REACTIONS (3)
  - GYNAECOMASTIA [None]
  - PROTEIN TOTAL INCREASED [None]
  - SOMNOLENCE [None]
